FAERS Safety Report 25111872 (Version 2)
Quarter: 2025Q3

REPORT INFORMATION
  Report Type: Report from Study
  Country: US (occurrence: US)
  Receive Date: 20250324
  Receipt Date: 20250802
  Transmission Date: 20251020
  Serious: Yes (Hospitalization)
  Sender: ALEXION PHARMACEUTICALS
  Company Number: US-AstraZeneca-CH-00828831A

PATIENT
  Age: 70 Year
  Sex: Female

DRUGS (1)
  1. CAPIVASERTIB [Suspect]
     Active Substance: CAPIVASERTIB
     Route: 065
     Dates: start: 20250227, end: 20250304

REACTIONS (3)
  - Blood glucose abnormal [Recovering/Resolving]
  - Rash [Recovering/Resolving]
  - Respiratory disorder [Recovering/Resolving]

NARRATIVE: CASE EVENT DATE: 20250308
